FAERS Safety Report 4870003-1 (Version None)
Quarter: 2005Q4

REPORT INFORMATION
  Report Type: 
  Country: None (occurrence: None)
  Receive Date: 20051223
  Receipt Date: 20051215
  Transmission Date: 20060501
  Serious: Yes (Hospitalization)
  Sender: FDA-Public Use
  Company Number: 163-20785-05120296

PATIENT
  Age: 70 Year
  Sex: Male

DRUGS (2)
  1. THALOMID [Suspect]
     Indication: MYELODYSPLASTIC SYNDROME
     Dosage: 100MG TO 400MG, DAILY, ORAL
     Route: 048
     Dates: start: 20051108
  2. CHEMOTHERAPY [Suspect]
     Indication: MYELODYSPLASTIC SYNDROME

REACTIONS (5)
  - DYSGEUSIA [None]
  - DYSPNOEA [None]
  - LEUKAEMIA [None]
  - ORAL INTAKE REDUCED [None]
  - RESPIRATORY DISORDER [None]
